FAERS Safety Report 5873916-7 (Version None)
Quarter: 2008Q3

REPORT INFORMATION
  Report Type: 
  Country: None (occurrence: None)
  Receive Date: 20080906
  Receipt Date: 20080906
  Transmission Date: 20090109
  Serious: Yes (Disabling)
  Sender: FDA-Public Use
  Company Number: None

PATIENT
  Age: 66 Year
  Sex: Female
  Weight: 70.5 kg

DRUGS (4)
  1. LEVAQUIN [Suspect]
     Indication: PNEUMONIA
     Dosage: 750 MG IV  GIVEN 1 TIME BEFORE
     Route: 042
     Dates: start: 20080901, end: 20080901
  2. ZOFRAN [Concomitant]
  3. TYLENOL (CAPLET) [Concomitant]
  4. MOTRIN [Concomitant]

REACTIONS (2)
  - PRURITUS GENERALISED [None]
  - RASH MACULAR [None]
